FAERS Safety Report 5909014-3 (Version None)
Quarter: 2008Q4

REPORT INFORMATION
  Report Type: 
  Country: None (occurrence: None)
  Receive Date: 20081006
  Receipt Date: 20080924
  Transmission Date: 20090506
  Serious: Yes (Hospitalization)
  Sender: FDA-Public Use
  Company Number: DE-ROCHE-588070

PATIENT
  Sex: Male
  Weight: 101 kg

DRUGS (3)
  1. PEGASYS [Suspect]
     Route: 058
     Dates: start: 20080808, end: 20080825
  2. RIBAVIRIN [Suspect]
     Route: 048
     Dates: start: 20080808, end: 20080901
  3. HUMALOG [Concomitant]
     Indication: DIABETES MELLITUS
     Route: 058
     Dates: start: 20070901

REACTIONS (2)
  - BLOOD CHOLINESTERASE DECREASED [None]
  - PROTHROMBIN TIME PROLONGED [None]
